FAERS Safety Report 7099177-1 (Version None)
Quarter: 2010Q4

REPORT INFORMATION
  Report Type: 
  Country: None (occurrence: None)
  Receive Date: 20101112
  Receipt Date: 20101101
  Transmission Date: 20110411
  Serious: Yes (Hospitalization)
  Sender: FDA-Public Use
  Company Number: US-JNJFOC-20100908848

PATIENT
  Sex: Male

DRUGS (36)
  1. REMICADE [Suspect]
     Indication: IRITIS
     Dosage: 3RD DOSE
     Route: 042
  2. REMICADE [Suspect]
     Dosage: 1ST DOSE
     Route: 042
  3. REMICADE [Suspect]
     Dosage: 2ND DOSE
     Route: 042
  4. REMICADE [Suspect]
     Indication: RHEUMATOID ARTHRITIS
     Dosage: 3RD DOSE
     Route: 042
  5. REMICADE [Suspect]
     Dosage: 1ST DOSE
     Route: 042
  6. REMICADE [Suspect]
     Dosage: 2ND DOSE
     Route: 042
  7. METHOTREXATE [Concomitant]
  8. COUMADIN [Concomitant]
  9. FOLIC ACID [Concomitant]
  10. CELEBREX [Concomitant]
     Route: 048
  11. PREDNISONE [Concomitant]
  12. ANDROGEL [Concomitant]
  13. ZANTAC [Concomitant]
  14. OMEPRAZOLE [Concomitant]
     Route: 048
  15. DURAGESIC-100 [Concomitant]
  16. MORPHINE SULFATE [Concomitant]
  17. ROBAXIN [Concomitant]
  18. METOPROLOL [Concomitant]
  19. ENALAPRIL MALEATE [Concomitant]
  20. MIRAPEX [Concomitant]
  21. TEMAZEPAM [Concomitant]
  22. LYRICA [Concomitant]
  23. LOVASTATIN [Concomitant]
  24. TRAZODONE [Concomitant]
  25. VITAMIN B-12 [Concomitant]
  26. WARFARIN SODIUM [Concomitant]
  27. ESGIC [Concomitant]
  28. PREDNISOLONE [Concomitant]
     Route: 031
  29. HYDROXYZINE [Concomitant]
  30. VITAMIN D [Concomitant]
  31. ASPIRIN [Concomitant]
     Route: 048
  32. DOCUSATE [Concomitant]
     Route: 054
  33. LISINOPRIL [Concomitant]
     Route: 048
  34. ATIVAN [Concomitant]
  35. LOPRESSOR [Concomitant]
     Route: 048
  36. CRESTOR [Concomitant]

REACTIONS (18)
  - ABDOMINAL PAIN [None]
  - ASTHENIA [None]
  - ATELECTASIS [None]
  - BLOOD GLUCOSE INCREASED [None]
  - COLD SWEAT [None]
  - DIZZINESS [None]
  - FIBROMYALGIA [None]
  - HAEMOGLOBIN DECREASED [None]
  - HEADACHE [None]
  - HYPERHIDROSIS [None]
  - HYPERTENSION [None]
  - INFUSION RELATED REACTION [None]
  - MYOCARDIAL INFARCTION [None]
  - NAUSEA [None]
  - NECK PAIN [None]
  - REVERSIBLE POSTERIOR LEUKOENCEPHALOPATHY SYNDROME [None]
  - STATUS EPILEPTICUS [None]
  - WHITE BLOOD CELL COUNT INCREASED [None]
